APPROVED DRUG PRODUCT: METHYLDOPA AND HYDROCHLOROTHIAZIDE
Active Ingredient: HYDROCHLOROTHIAZIDE; METHYLDOPA
Strength: 15MG;250MG
Dosage Form/Route: TABLET;ORAL
Application: A072507 | Product #001
Applicant: DAVA PHARMACEUTICALS INC
Approved: Jun 2, 1989 | RLD: No | RS: No | Type: DISCN